FAERS Safety Report 4915322-5 (Version None)
Quarter: 2006Q1

REPORT INFORMATION
  Report Type: 
  Country: None (occurrence: None)
  Receive Date: 20060217
  Receipt Date: 20060208
  Transmission Date: 20060701
  Serious: Yes (Life-Threatening)
  Sender: FDA-Public Use
  Company Number: 2006-00034

PATIENT

DRUGS (1)
  1. LAMOTRIGINE [Suspect]
     Indication: EPILEPSY
     Dosage: 300MG PER DAY

REACTIONS (3)
  - CHROMOSOME ABNORMALITY [None]
  - DRUG EXPOSURE DURING PREGNANCY [None]
  - TRISOMY 13 [None]
